FAERS Safety Report 20939136 (Version 2)
Quarter: 2022Q2

REPORT INFORMATION
  Report Type: Report from Study
  Country: US (occurrence: US)
  Receive Date: 20220609
  Receipt Date: 20220614
  Transmission Date: 20220720
  Serious: Yes (Hospitalization)
  Sender: FDA-Public Use
  Company Number: US-BAYER-2022A081030

PATIENT
  Age: 80 Year
  Sex: Male

DRUGS (1)
  1. XOFIGO [Suspect]
     Active Substance: RADIUM RA-223 DICHLORIDE
     Indication: Hormone-refractory prostate cancer
     Dosage: 137.90 UCI, ONCE EVERY 28 DAYS, IV
     Route: 042
     Dates: start: 20220209

REACTIONS (2)
  - Hospitalisation [None]
  - Full blood count abnormal [None]

NARRATIVE: CASE EVENT DATE: 20220525
